FAERS Safety Report 5349914-9 (Version None)
Quarter: 2007Q2

REPORT INFORMATION
  Report Type: 
  Country: None (occurrence: None)
  Receive Date: 20070607
  Receipt Date: 20070528
  Transmission Date: 20071010
  Serious: Yes (Other)
  Sender: FDA-Public Use
  Company Number: FR-PFIZER INC-2007044621

PATIENT
  Sex: Female

DRUGS (3)
  1. LYRICA [Suspect]
     Indication: PAIN
     Dates: start: 20060101, end: 20070501
  2. NEURONTIN [Suspect]
     Indication: PAIN
  3. DEROXAT [Concomitant]

REACTIONS (3)
  - EYE PAIN [None]
  - PAIN [None]
  - WEIGHT INCREASED [None]
